FAERS Safety Report 6880954-4 (Version None)
Quarter: 2010Q2

REPORT INFORMATION
  Report Type: 
  Country: None (occurrence: None)
  Receive Date: 20100630
  Receipt Date: 20091214
  Transmission Date: 20101027
  Serious: Yes (Other)
  Sender: FDA-Public Use
  Company Number: 2009291878

PATIENT
  Age: 57 Year
  Sex: Male
  Weight: 63.5 kg

DRUGS (2)
  1. AZITHROMYCIN [Suspect]
     Indication: SINUSITIS
     Dosage: 500 MG, DAILY, ORAL
     Route: 048
     Dates: end: 20090501
  2. LEVOTHYROXINE SODIUM [Concomitant]

REACTIONS (5)
  - ABDOMINAL DISCOMFORT [None]
  - DYSPEPSIA [None]
  - PALPITATIONS [None]
  - VENTRICULAR PRE-EXCITATION [None]
  - VOMITING [None]
